FAERS Safety Report 20388016 (Version 2)
Quarter: 2022Q1

REPORT INFORMATION
  Report Type: Spontaneous
  Country: PT (occurrence: PT)
  Receive Date: 20220128
  Receipt Date: 20220210
  Transmission Date: 20220423
  Serious: Yes (Death, Other)
  Sender: FDA-Public Use
  Company Number: PT-TAKEDA-2022TUS005158

PATIENT
  Age: 17 Year
  Sex: Male

DRUGS (2)
  1. ELAPRASE [Suspect]
     Active Substance: IDURSULFASE
     Indication: Mucopolysaccharidosis II
     Dosage: UNK
     Route: 065
  2. ELAPRASE [Suspect]
     Active Substance: IDURSULFASE
     Dosage: UNK
     Route: 065

REACTIONS (1)
  - Choking [Fatal]

NARRATIVE: CASE EVENT DATE: 20211020
